FAERS Safety Report 10051074 (Version 2)
Quarter: 2014Q2

REPORT INFORMATION
  Report Type: Spontaneous
  Country: US (occurrence: US)
  Receive Date: 20140401
  Receipt Date: 20140401
  Transmission Date: 20141212
  Serious: No
  Sender: FDA-Public Use
  Company Number: US-ASTRAZENECA-2008UW13307

PATIENT
  Sex: Female

DRUGS (4)
  1. NEXIUM [Suspect]
     Indication: GASTROOESOPHAGEAL REFLUX DISEASE
     Route: 048
  2. NEXIUM [Suspect]
     Indication: GASTROOESOPHAGEAL REFLUX DISEASE
     Route: 048
     Dates: start: 200806
  3. SEROQUEL [Suspect]
     Indication: ANXIETY
     Route: 048
  4. SEROQUEL [Suspect]
     Indication: ANXIETY
     Route: 048

REACTIONS (7)
  - Headache [Unknown]
  - Nausea [Unknown]
  - Abdominal pain upper [Unknown]
  - Dizziness [Unknown]
  - Fatigue [Unknown]
  - Therapeutic response changed [Unknown]
  - Off label use [Unknown]
